FAERS Safety Report 6928993-9 (Version None)
Quarter: 2010Q3

REPORT INFORMATION
  Report Type: 
  Country: None (occurrence: None)
  Receive Date: 20100817
  Receipt Date: 20100807
  Transmission Date: 20110219
  Serious: Yes (Hospitalization)
  Sender: FDA-Public Use
  Company Number: US-ABBOTT-10P-163-0662258-00

PATIENT
  Age: 52 Year
  Sex: Female

DRUGS (15)
  1. KALETRA [Suspect]
     Indication: PRODUCT USED FOR UNKNOWN INDICATION
     Dosage: TWO 200/50-MG 2X DAY
  2. KALETRA [Suspect]
     Dosage: TWO 200/50 MG- TWICE
  3. CLONIDINE [Suspect]
     Indication: PRODUCT USED FOR UNKNOWN INDICATION
     Route: 048
  4. CLONIDINE [Suspect]
     Route: 048
  5. CLONIDINE [Suspect]
  6. METOPROLOL TARTRATE [Suspect]
     Indication: PRODUCT USED FOR UNKNOWN INDICATION
  7. METOPROLOL TARTRATE [Suspect]
     Dosage: 100 MG TWICE
  8. METOPROLOL TARTRATE [Suspect]
  9. DILTIAZEM CD [Suspect]
     Indication: PRODUCT USED FOR UNKNOWN INDICATION
  10. DILTIAZEM CD [Suspect]
  11. HYDRALAZINE [Suspect]
     Indication: PRODUCT USED FOR UNKNOWN INDICATION
  12. HYDRALAZINE [Suspect]
     Dosage: 10 MG- 3 TIMES
     Route: 042
  13. HYDRALAZINE [Suspect]
  14. LABETALOL HCL [Suspect]
     Indication: PRODUCT USED FOR UNKNOWN INDICATION
  15. NIFEDIPINE [Suspect]
     Indication: PRODUCT USED FOR UNKNOWN INDICATION

REACTIONS (3)
  - DRUG INTERACTION [None]
  - ELECTROCARDIOGRAM ABNORMAL [None]
  - HYPOTENSION [None]
